FAERS Safety Report 6141117-3 (Version None)
Quarter: 2009Q2

REPORT INFORMATION
  Report Type: 
  Country: None (occurrence: None)
  Receive Date: 20090402
  Receipt Date: 20090323
  Transmission Date: 20091009
  Serious: Yes (Hospitalization)
  Sender: FDA-Public Use
  Company Number: US-ABBOTT-09P-163-0558934-00

PATIENT
  Sex: Male
  Weight: 88.53 kg

DRUGS (14)
  1. ZEMPLAR [Suspect]
     Indication: RENAL DISORDER
     Route: 048
     Dates: start: 20080101
  2. ZEMPLAR [Suspect]
     Indication: HYPERPARATHYROIDISM
  3. COZAAR [Concomitant]
     Indication: BLOOD CHOLESTEROL INCREASED
     Route: 048
  4. LABETALOL HCL [Concomitant]
     Indication: CARDIAC DISORDER
     Route: 048
  5. TORSEMIDE [Concomitant]
     Indication: CARDIAC DISORDER
     Route: 048
  6. ALLOPURINOL [Concomitant]
     Indication: RENAL DISORDER
     Route: 048
  7. ALLOPURINOL [Concomitant]
     Indication: BLOOD URIC ACID INCREASED
  8. ALLOPURINOL [Concomitant]
     Indication: GOUT
  9. COLCHICINE [Concomitant]
     Indication: RENAL DISORDER
     Route: 048
  10. COLCHICINE [Concomitant]
     Indication: GOUT
  11. LANOXIN [Concomitant]
     Indication: HEART RATE
     Route: 048
  12. COUMADIN [Concomitant]
     Indication: ATRIAL FIBRILLATION
     Dosage: 2.5MG ON MON AND FRI OTHER DAYS 5MG
     Route: 048
  13. LASIX [Concomitant]
     Indication: DRUG USE FOR UNKNOWN INDICATION
  14. DIGOXIN [Concomitant]
     Indication: DRUG USE FOR UNKNOWN INDICATION

REACTIONS (5)
  - ABDOMINAL PAIN UPPER [None]
  - DYSPNOEA [None]
  - MUSCLE SPASMS [None]
  - OSTEOPOROSIS [None]
  - RENAL DISORDER [None]
